FAERS Safety Report 21767528 (Version 2)
Quarter: 2023Q1

REPORT INFORMATION
  Report Type: Report from Study
  Country: IT (occurrence: IT)
  Receive Date: 20221222
  Receipt Date: 20230111
  Transmission Date: 20230417
  Serious: Yes (Hospitalization)
  Sender: FDA-Public Use
  Company Number: None

PATIENT

DRUGS (20)
  1. TAFASITAMAB [Suspect]
     Active Substance: TAFASITAMAB
     Indication: B-cell lymphoma
     Dosage: 940 MG (12MG/KG) GG 1-4-8-15-22 (FIRST CYCLE).THE DRUG  WAS SUSPENDED AT THE SECOND CYCLE SCHEDULED
     Route: 042
     Dates: start: 20220916, end: 20221007
  2. LENALIDOMIDE [Suspect]
     Active Substance: LENALIDOMIDE
     Indication: B-cell lymphoma
     Dosage: COMPASSIONATE USE
     Route: 048
     Dates: start: 20220916, end: 20220926
  3. LENALIDOMIDE [Suspect]
     Active Substance: LENALIDOMIDE
     Indication: B-cell lymphoma
     Dosage: 15 MILLIGRAM, QD
     Route: 048
     Dates: start: 20221014, end: 20221020
  4. LATANOPROST [Concomitant]
     Active Substance: LATANOPROST
     Indication: Product used for unknown indication
     Dosage: UNK
  5. LATANOPROST [Concomitant]
     Active Substance: LATANOPROST
     Dosage: 1 GTT PER EYE. UNKNOWN BATCH NUMBER AND START DATE OF INTAKE
     Route: 047
  6. LANSOPRAZOLE [Concomitant]
     Active Substance: LANSOPRAZOLE
     Indication: Product used for unknown indication
     Dosage: 30 MG/DAY. BATCH NUMBER AND START DATE OF INTAKE UNKNOWN
     Route: 048
  7. LANSOPRAZOLE [Concomitant]
     Active Substance: LANSOPRAZOLE
     Dosage: 30 MG/DIE. UNKNOWN BATCH NUMBER AND START DATE OF INTAKE
     Route: 048
  8. LYRICA [Concomitant]
     Active Substance: PREGABALIN
     Indication: Product used for unknown indication
     Dosage: 75 MG/DAY. BATCH NUMBER AND START DATE OF INTAKE UNKNOW
     Route: 065
  9. LYRICA [Concomitant]
     Active Substance: PREGABALIN
     Dosage: 75 MG/DIE. UNKNOWN BATCH NUMBER AND START DATE OF INTAKE
     Route: 065
  10. ASPIRIN [Concomitant]
     Active Substance: ASPIRIN
     Indication: Product used for unknown indication
     Dosage: 100 MG/DAY. BATCH NUMBER AND START DATE OF INTAKE UNKNOWN
     Route: 048
  11. ASPIRIN [Concomitant]
     Active Substance: ASPIRIN
     Dosage: 100 MG/DAY. UNKNOWN BATCH NUMBER AND START DATE OF INTAKE
     Route: 048
  12. CHOLECALCIFEROL [Concomitant]
     Active Substance: CHOLECALCIFEROL
     Indication: Product used for unknown indication
     Dosage: 25000 IU/MONTH. BATCH NUMBER AND START DATE OF INTAKE UNKNOWN
     Route: 048
  13. CHOLECALCIFEROL [Concomitant]
     Active Substance: CHOLECALCIFEROL
     Dosage: 2500 IU/MONTH. UNKNOWN BATCH NUMBER AND START DATE OF INTAKE
     Route: 048
  14. VALACYCLOVIR HYDROCHLORIDE [Concomitant]
     Active Substance: VALACYCLOVIR HYDROCHLORIDE
     Indication: Prophylaxis
     Dosage: 500 MG/DAY. UNKNOWN LOT #
     Route: 048
     Dates: start: 20220916, end: 20221107
  15. BACTRIM [Concomitant]
     Active Substance: SULFAMETHOXAZOLE\TRIMETHOPRIM
     Indication: Prophylaxis
     Dosage: 1 CP/DAY MONDAY-WEDNESDAY-FRIDAY. NO LOT NUMBER IS KNOWN.
     Route: 048
     Dates: start: 20220916, end: 20221107
  16. ALLOPURINOL [Concomitant]
     Active Substance: ALLOPURINOL
     Indication: Product used for unknown indication
     Dosage: 300 MG/DAY. NO BATCH NUMBER AND START DATE ARE KNOWN.
     Route: 048
     Dates: end: 20221025
  17. ROSUVASTATIN [Concomitant]
     Active Substance: ROSUVASTATIN
     Indication: Product used for unknown indication
     Dosage: 5 MG/DAY. BATCH NUMBER AND START DATE OF INTAKE UNKNOWN
     Route: 048
  18. ROSUVASTATIN [Concomitant]
     Active Substance: ROSUVASTATIN
     Dosage: 5 MG/DIE. UNKNOWN BATCH NUMBER AND START DATE OF INTAKE
     Route: 048
  19. LEVOTHYROXINE SODIUM [Concomitant]
     Active Substance: LEVOTHYROXINE SODIUM
     Indication: Product used for unknown indication
     Dosage: 100 MCG/DAY. BATCH NUMBER AND START DATE OF INTAKE UNKNOWN
     Route: 048
  20. LEVOTHYROXINE SODIUM [Concomitant]
     Active Substance: LEVOTHYROXINE SODIUM
     Dosage: 100 MCG/DAY. UNKNOWN BATCH NUMBER AND START DATE OF INTAKE
     Route: 048

REACTIONS (1)
  - Erythema multiforme [Recovering/Resolving]

NARRATIVE: CASE EVENT DATE: 20220926
